FAERS Safety Report 4584789-7 (Version None)
Quarter: 2005Q1

REPORT INFORMATION
  Report Type: 
  Country: None (occurrence: None)
  Receive Date: 20050217
  Receipt Date: 20050204
  Transmission Date: 20050727
  Serious: Yes (Hospitalization)
  Sender: FDA-Public Use
  Company Number: JP-JNJFOC-20040809301

PATIENT
  Sex: Female
  Weight: 48 kg

DRUGS (8)
  1. REMICADE [Suspect]
     Route: 042
  2. REMICADE [Suspect]
     Route: 042
  3. REMICADE [Suspect]
     Route: 042
  4. REMICADE [Suspect]
     Indication: RHEUMATOID ARTHRITIS
     Route: 042
  5. RHEUMATREX [Concomitant]
  6. PREDONINE [Concomitant]
     Route: 049
  7. SHIOSOL [Concomitant]
     Route: 058
  8. VOLTAREN [Concomitant]

REACTIONS (22)
  - ABDOMINAL PAIN [None]
  - BACK PAIN [None]
  - BLOOD URINE PRESENT [None]
  - DIARRHOEA [None]
  - DIFFUSE LARGE B-CELL LYMPHOMA [None]
  - FAECAL OCCULT BLOOD [None]
  - HAEMATURIA [None]
  - INFECTIVE SPONDYLITIS [None]
  - INTERVERTEBRAL DISC PROTRUSION [None]
  - LYMPHOMA [None]
  - MUSCULAR WEAKNESS [None]
  - NAUSEA [None]
  - NECROSIS [None]
  - PELVIC PAIN [None]
  - PROCTALGIA [None]
  - RECTAL ULCER [None]
  - SPINAL COMPRESSION FRACTURE [None]
  - SPINAL FRACTURE [None]
  - STAPHYLOCOCCAL ABSCESS [None]
  - STAPHYLOCOCCAL INFECTION [None]
  - STRESS FRACTURE [None]
  - TUBERCULOSIS [None]
